FAERS Safety Report 8831649 (Version 1)
Quarter: 2012Q4

REPORT INFORMATION
  Report Type: 
  Country: HR (occurrence: HR)
  Receive Date: 20121009
  Receipt Date: 20121009
  Transmission Date: 20130627
  Serious: Yes (Hospitalization)
  Sender: FDA-Public Use
  Company Number: HR-GLAXOSMITHKLINE-B0836106A

PATIENT
  Age: 64 Year
  Sex: Male

DRUGS (1)
  1. HYCAMTIN [Suspect]
     Indication: LUNG NEOPLASM MALIGNANT
     Dosage: 3MG per day
     Route: 048
     Dates: start: 20120427, end: 20120501

REACTIONS (4)
  - Hepatic failure [Recovered/Resolved]
  - Asthenia [Recovered/Resolved]
  - Nausea [Recovered/Resolved]
  - Abdominal pain upper [Recovered/Resolved]
